FAERS Safety Report 16373831 (Version 1)
Quarter: 2019Q2

REPORT INFORMATION
  Report Type: Spontaneous
  Country: US (occurrence: US)
  Receive Date: 20190530
  Receipt Date: 20190530
  Transmission Date: 20190711
  Serious: Yes (Other)
  Sender: FDA-Public Use
  Company Number: US-ASTRAZENECA-2019SE77051

PATIENT
  Age: 61 Year
  Sex: Female

DRUGS (1)
  1. ZOMIG [Suspect]
     Active Substance: ZOLMITRIPTAN
     Dosage: ADMINISTER 1 SPRAY IN ONE NOSTRIL AT ONSET OF MIGRAINE. MAY REPEAT DOSE
     Route: 045

REACTIONS (4)
  - Fall [Unknown]
  - Lower limb fracture [Unknown]
  - Joint injury [Unknown]
  - Product dose omission [Unknown]
